FAERS Safety Report 4837117-3 (Version None)
Quarter: 2005Q4

REPORT INFORMATION
  Report Type: 
  Country: None (occurrence: None)
  Receive Date: 20051121
  Receipt Date: 20051110
  Transmission Date: 20060501
  Serious: Yes (Hospitalization)
  Sender: FDA-Public Use
  Company Number: 219389

PATIENT
  Age: 36 Year
  Sex: Female

DRUGS (13)
  1. RITUXIMAB                  (RITUXIMAB) [Suspect]
     Indication: NON-HODGKIN'S LYMPHOMA
     Dosage: INTRAVENOUS
     Route: 042
     Dates: start: 20050901, end: 20051030
  2. METHOTREXATE [Suspect]
     Indication: NON-HODGKIN'S LYMPHOMA
     Dates: start: 20050901, end: 20051030
  3. CYTARABINE [Suspect]
     Indication: NON-HODGKIN'S LYMPHOMA
     Dates: start: 20050901, end: 20051030
  4. VINCRISTINE [Concomitant]
  5. DOXORUBICIN HYDROCHLORIDE [Concomitant]
  6. DEXAMETHASONE [Concomitant]
  7. CIPRO [Concomitant]
  8. PROTONIX [Concomitant]
  9. NYSTATIN [Concomitant]
  10. VALTREX (VALCYCLOVIR) [Concomitant]
  11. TEMAZEPAM [Concomitant]
  12. DIFLUCAN (FLUCONAZOLE) [Concomitant]
  13. NEUPOGEN [Concomitant]

REACTIONS (6)
  - ANAEMIA [None]
  - ANAPHYLACTIC REACTION [None]
  - ASTHENIA [None]
  - FEBRILE NEUTROPENIA [None]
  - PLATELET COUNT DECREASED [None]
  - WHITE BLOOD CELL COUNT DECREASED [None]
